FAERS Safety Report 16217347 (Version 1)
Quarter: 2019Q2

REPORT INFORMATION
  Report Type: Spontaneous
  Country: US (occurrence: US)
  Receive Date: 20190419
  Receipt Date: 20190419
  Transmission Date: 20190711
  Serious: Yes (Hospitalization, Other)
  Sender: FDA-Public Use
  Company Number: US-SA-2019SA087033

PATIENT
  Age: 80 Year
  Sex: Male

DRUGS (13)
  1. LAMOTRIGINE. [Concomitant]
     Active Substance: LAMOTRIGINE
  2. MOXIFLOXACIN HCL [Concomitant]
     Active Substance: MOXIFLOXACIN
  3. OXYBUTYNIN. [Concomitant]
     Active Substance: OXYBUTYNIN CHLORIDE
  4. CITALOPRAM [Concomitant]
     Active Substance: CITALOPRAM HYDROBROMIDE
  5. DUPIXENT [Suspect]
     Active Substance: DUPILUMAB
     Dosage: 300 MG,QOW
     Route: 058
     Dates: start: 20181205
  6. LORAZEPAM. [Concomitant]
     Active Substance: LORAZEPAM
  7. MOXIFLOXACIN. [Concomitant]
     Active Substance: MOXIFLOXACIN
  8. CLOPIDOGREL [Concomitant]
     Active Substance: CLOPIDOGREL BISULFATE
  9. DONEPEZIL. [Concomitant]
     Active Substance: DONEPEZIL
  10. CARVEDIOL [Concomitant]
     Active Substance: CARVEDILOL
  11. HYDROCODONE BITARTRATE AND ACETAMINOPHEN [Concomitant]
     Active Substance: ACETAMINOPHEN\HYDROCODONE BITARTRATE
  12. DUPIXENT [Suspect]
     Active Substance: DUPILUMAB
     Indication: DERMATITIS ATOPIC
     Dosage: 300 MG, QOW
     Route: 058
     Dates: start: 20181126
  13. ROSUVASTATIN. [Concomitant]
     Active Substance: ROSUVASTATIN

REACTIONS (4)
  - Pneumonia [Unknown]
  - Atrial fibrillation [Unknown]
  - Unevaluable event [Unknown]
  - Unevaluable event [Not Recovered/Not Resolved]

NARRATIVE: CASE EVENT DATE: 20190322
